FAERS Safety Report 17735543 (Version 3)
Quarter: 2020Q2

REPORT INFORMATION
  Report Type: Spontaneous
  Country: EG (occurrence: EG)
  Receive Date: 20200501
  Receipt Date: 20200512
  Transmission Date: 20200714
  Serious: Yes (Death, Life-Threatening)
  Sender: FDA-Public Use
  Company Number: EG-GE HEALTHCARE LIFE SCIENCES-2020CSU001779

PATIENT

DRUGS (5)
  1. OMNIPAQUE [Suspect]
     Active Substance: IOHEXOL
     Indication: COMPUTERISED TOMOGRAM ABDOMEN
     Dosage: 50 ML, SINGLE
     Route: 042
     Dates: start: 20200426, end: 20200426
  2. OMNIPAQUE [Suspect]
     Active Substance: IOHEXOL
     Indication: ABDOMINAL PAIN
  3. AVIL [PHENIRAMINE MALEATE] [Concomitant]
     Indication: PREMEDICATION
     Dosage: UNK
     Dates: start: 20200426, end: 20200426
  4. OMNIPAQUE [Suspect]
     Active Substance: IOHEXOL
     Indication: GASTROINTESTINAL DISORDER
  5. OMNIPAQUE [Suspect]
     Active Substance: IOHEXOL
     Indication: COMPUTERISED TOMOGRAM PELVIS
     Dosage: UNK UNK, SINGLE
     Route: 048
     Dates: start: 20200426, end: 20200426

REACTIONS (3)
  - Hypotension [Fatal]
  - Cardiac arrest [Fatal]
  - Cough [Not Recovered/Not Resolved]

NARRATIVE: CASE EVENT DATE: 20200426
